FAERS Safety Report 5659445 (Version 18)
Quarter: 2016Q1

REPORT INFORMATION
  Report Type: Spontaneous
  Country: US (occurrence: US)
  Receive Date: 20041105
  Receipt Date: 20160307
  Transmission Date: 20160526
  Serious: Yes (Hospitalization, Disabling, Other)
  Sender: FDA-Public Use
  Company Number: US-ROCHE-384838

PATIENT
  Age: 24 Year
  Sex: Female
  Weight: 46.3 kg

DRUGS (10)
  1. ACCUTANE [Suspect]
     Active Substance: ISOTRETINOIN
     Dosage: REPORTED AS 40 MG AND 60 MG
     Route: 048
     Dates: start: 200002, end: 200003
  2. FLONASE (UNITED STATES) [Concomitant]
  3. CLEOCIN LOTION [Concomitant]
     Route: 065
  4. ACCUTANE [Suspect]
     Active Substance: ISOTRETINOIN
     Indication: ACNE
     Route: 048
     Dates: start: 199909, end: 199911
  5. ACCUTANE [Suspect]
     Active Substance: ISOTRETINOIN
     Dosage: REPORTED AS 40 MG AND 10 MG
     Route: 048
     Dates: start: 199911, end: 200002
  6. ORTHO TRI CYCLEN [Concomitant]
     Active Substance: ETHINYL ESTRADIOL\NORGESTIMATE
     Indication: CONTRACEPTION
     Route: 048
  7. ALLEGRA [Concomitant]
     Active Substance: FEXOFENADINE HYDROCHLORIDE
  8. PROZAC [Concomitant]
     Active Substance: FLUOXETINE HYDROCHLORIDE
  9. ACCUTANE [Suspect]
     Active Substance: ISOTRETINOIN
     Dosage: REPORTED AS 40 MG AND 10 MG
     Route: 048
     Dates: start: 200003, end: 200004
  10. ALBUTEROL. [Concomitant]
     Active Substance: ALBUTEROL

REACTIONS (15)
  - Internal injury [Unknown]
  - Colitis [Not Recovered/Not Resolved]
  - Colitis ulcerative [Not Recovered/Not Resolved]
  - Gastroenteritis [Recovered/Resolved]
  - Asthma [Unknown]
  - Rectal haemorrhage [Not Recovered/Not Resolved]
  - Hand dermatitis [Unknown]
  - Inflammatory bowel disease [Unknown]
  - Intestinal haemorrhage [Unknown]
  - Gastrointestinal disorder [Unknown]
  - Pouchitis [Not Recovered/Not Resolved]
  - Dry skin [Unknown]
  - Sinusitis [Unknown]
  - Headache [Unknown]
  - Irritable bowel syndrome [Unknown]

NARRATIVE: CASE EVENT DATE: 199911
